FAERS Safety Report 7328475-9 (Version None)
Quarter: 2011Q1

REPORT INFORMATION
  Report Type: 
  Country: None (occurrence: None)
  Receive Date: 20110303
  Receipt Date: 20110228
  Transmission Date: 20110831
  Serious: Yes (Death)
  Sender: FDA-Public Use
  Company Number: JP-PFIZER INC-2011007453

PATIENT
  Age: 75 Year
  Sex: Female

DRUGS (3)
  1. CIPROFLOXACIN HCL [Suspect]
     Dosage: UNK
  2. ACYCLOVIR [Suspect]
     Dosage: UNK
  3. LYRICA [Suspect]
     Indication: POST HERPETIC NEURALGIA
     Dosage: 75 MG/DAY
     Route: 048
     Dates: start: 20110102, end: 20110105

REACTIONS (1)
  - PNEUMONITIS [None]
